FAERS Safety Report 4802640-4 (Version None)
Quarter: 2005Q4

REPORT INFORMATION
  Report Type: 
  Country: None (occurrence: None)
  Receive Date: 20051014
  Receipt Date: 20050517
  Transmission Date: 20060501
  Serious: Yes (Other)
  Sender: FDA-Public Use
  Company Number: 2005076973

PATIENT
  Age: 30 Year
  Sex: Female
  Weight: 49.4421 kg

DRUGS (3)
  1. NEURONTIN [Suspect]
     Indication: CONVULSION
  2. GABAPENTIN [Suspect]
     Indication: CONVULSION
     Dates: start: 20050101, end: 20050101
  3. TEGRETOL [Concomitant]

REACTIONS (1)
  - CONVULSION [None]
